FAERS Safety Report 6253763-7 (Version None)
Quarter: 2009Q2

REPORT INFORMATION
  Report Type: 
  Country: None (occurrence: None)
  Receive Date: 20090630
  Receipt Date: 20090622
  Transmission Date: 20091009
  Serious: Yes (Death, Hospitalization)
  Sender: FDA-Public Use
  Company Number: 2009-197499-NL

PATIENT
  Age: 25 Year
  Sex: Female

DRUGS (7)
  1. FOLLITROPIN BETA [Suspect]
     Indication: OVULATION INDUCTION
     Dosage: 980 IU; { ONE MONTH
     Dates: start: 20090501, end: 20090501
  2. CHORIONIC GONADOTROPIN [Suspect]
     Dosage: 10000 IU,
  3. DEXAMETHASONE TAB [Suspect]
     Indication: PROPHYLAXIS
     Dosage: 0.25 DF, QD;
  4. ACETYLSALICYLIC ACID SRT [Suspect]
     Dosage: DF,
  5. ESTRADIOL VALERATE [Concomitant]
  6. DYDROGESTERONE TAB [Concomitant]
  7. FOLIC ACID [Concomitant]

REACTIONS (6)
  - ASTHENIA [None]
  - DIZZINESS [None]
  - GASTRIC ULCER PERFORATION [None]
  - OVARIAN HYPERSTIMULATION SYNDROME [None]
  - PERITONITIS [None]
  - SEPSIS [None]
